FAERS Safety Report 5035841-3 (Version None)
Quarter: 2006Q2

REPORT INFORMATION
  Report Type: 
  Country: None (occurrence: None)
  Receive Date: 20060526
  Receipt Date: 20060208
  Transmission Date: 20061013
  Serious: No
  Sender: FDA-Public Use
  Company Number: 221941

PATIENT
  Age: 37 Year
  Sex: Male

DRUGS (3)
  1. RAPTIVA [Suspect]
     Indication: DERMATITIS
     Dosage: 80 MG, 1/WEEK, SUBCUTANEOUS
     Route: 058
     Dates: start: 20060106, end: 20060202
  2. SORIATANE [Concomitant]
  3. TRIAMCINOLONE [Concomitant]

REACTIONS (2)
  - DERMATITIS PSORIASIFORM [None]
  - OEDEMA PERIPHERAL [None]
